FAERS Safety Report 5502991-4 (Version None)
Quarter: 2007Q4

REPORT INFORMATION
  Report Type: 
  Country: None (occurrence: None)
  Receive Date: 20071031
  Receipt Date: 20071016
  Transmission Date: 20080405
  Serious: Yes (Life-Threatening, Hospitalization)
  Sender: FDA-Public Use
  Company Number: DE-ELI_LILLY_AND_COMPANY-DE200710003454

PATIENT
  Sex: Female
  Weight: 48.5 kg

DRUGS (16)
  1. PEMETREXED [Suspect]
     Indication: OROPHARYNGEAL CANCER STAGE UNSPECIFIED
     Dosage: 800 MG, UNKNOWN
     Route: 065
     Dates: start: 20070920
  2. CISPLATIN [Suspect]
     Indication: OROPHARYNGEAL CANCER STAGE UNSPECIFIED
     Dosage: 120 MG, UNKNOWN
     Route: 065
     Dates: start: 20070920
  3. FOLIC ACID [Concomitant]
     Indication: PROPHYLAXIS
     Dosage: UNK, UNKNOWN
     Route: 065
  4. VITAMIN B-12 [Concomitant]
     Indication: PROPHYLAXIS
     Dosage: UNK, UNKNOWN
     Route: 065
  5. AVELOX [Concomitant]
     Indication: C-REACTIVE PROTEIN INCREASED
     Dosage: 400 MG, UNKNOWN
     Route: 065
     Dates: start: 20071008
  6. XIMOVAN [Concomitant]
     Indication: INSOMNIA
     Dosage: UNK, UNKNOWN
     Route: 065
  7. NOVALGIN [Concomitant]
     Indication: PAIN
     Dosage: UNK, UNKNOWN
     Route: 065
  8. KEVATRIL [Concomitant]
     Indication: NAUSEA
     Dosage: UNK, 2/D
     Route: 065
  9. ACC                                /00082801/ [Concomitant]
     Indication: RESPIRATORY DISORDER
     Dosage: UNK, UNKNOWN
     Route: 065
  10. PASPERTIN /00041902/ [Concomitant]
     Indication: NAUSEA
     Dosage: UNK, 3/D
     Route: 065
  11. BISOPROLOL FUMARATE [Concomitant]
     Indication: HYPERTENSION
     Dosage: 5 MG, UNKNOWN
     Route: 065
  12. RAMIPRIL [Concomitant]
     Indication: HYPERTENSION
     Dosage: 5 MG, UNKNOWN
     Route: 065
  13. CITALOPRAM HYDROBROMIDE [Concomitant]
     Indication: DEPRESSION
     Dosage: 20 MG, UNKNOWN
     Route: 065
  14. SODIUM CHLORIDE [Concomitant]
     Indication: HYPONATRAEMIA
     Dosage: 3X2
     Route: 065
     Dates: start: 20071005
  15. CLEXANE [Concomitant]
     Indication: THROMBOSIS PROPHYLAXIS
     Dosage: UNK, UNKNOWN
     Route: 065
     Dates: start: 20071010
  16. SUPRARENIN INJ [Concomitant]
     Indication: LUNG DISORDER
     Dates: start: 20071012

REACTIONS (5)
  - GASTRIC ULCER PERFORATION [None]
  - GENERAL PHYSICAL HEALTH DETERIORATION [None]
  - HYPONATRAEMIA [None]
  - LARYNGEAL OEDEMA [None]
  - LUNG INFILTRATION [None]
